FAERS Safety Report 5284226-3 (Version None)
Quarter: 2007Q2

REPORT INFORMATION
  Report Type: 
  Country: None (occurrence: None)
  Receive Date: 20070403
  Receipt Date: 20070320
  Transmission Date: 20071010
  Serious: Yes (Other)
  Sender: FDA-Public Use
  Company Number: PHBS2007JP05121

PATIENT
  Age: 46 Year
  Sex: Male

DRUGS (8)
  1. CARBAMAZEPINE [Suspect]
     Indication: AGITATION
     Dosage: 600 MG/DAY
     Route: 065
  2. LITHIUM CARBONATE [Concomitant]
     Dosage: 800 MG/DAY
  3. PROMETHAZINE HCL [Concomitant]
     Dosage: 50 MG/DAY
  4. FLUNITRAZEPAM [Concomitant]
     Dosage: 2 MG/DAY
  5. BROTIZOLAM [Concomitant]
     Dosage: 10 MG/DAY
  6. NIMETAZEPAM [Concomitant]
     Dosage: 5 MG/DAY
  7. OXATOMIDE [Concomitant]
     Dosage: 60 MG/DAY
  8. RISPERIDONE [Concomitant]

REACTIONS (9)
  - BLOOD CREATINE PHOSPHOKINASE INCREASED [None]
  - BLOOD SODIUM INCREASED [None]
  - BRAIN DAMAGE [None]
  - CATATONIA [None]
  - DIABETES INSIPIDUS [None]
  - HEART RATE INCREASED [None]
  - NUCLEAR MAGNETIC RESONANCE IMAGING ABNORMAL [None]
  - STUPOR [None]
  - UNRESPONSIVE TO STIMULI [None]
